FAERS Safety Report 14600501 (Version 3)
Quarter: 2018Q2

REPORT INFORMATION
  Report Type: Spontaneous
  Country: JP (occurrence: JP)
  Receive Date: 20180305
  Receipt Date: 20180518
  Transmission Date: 20180711
  Serious: Yes (Hospitalization, Other)
  Sender: FDA-Public Use
  Company Number: JP-GLAXOSMITHKLINE-JP2018JPN032708

PATIENT
  Age: 67 Year
  Sex: Male
  Weight: 56 kg

DRUGS (16)
  1. GASTER D TABLETS [Concomitant]
     Dosage: 10 MG, QD
  2. FOSRENOL [Concomitant]
     Active Substance: LANTHANUM CARBONATE
     Dosage: 250 MG, BID
  3. BAYASPIRIN TABLETS [Concomitant]
     Dosage: 100 MG, QD
  4. ARTIST TABLETS [Concomitant]
     Active Substance: CARVEDILOL
     Dosage: 2.5 MG, QD
  5. VALTREX [Suspect]
     Active Substance: VALACYCLOVIR HYDROCHLORIDE
     Indication: HERPES ZOSTER
     Dosage: 500 MG, QD
     Route: 048
     Dates: start: 20180224, end: 20180224
  6. KALIMATE POWDER [Concomitant]
     Dosage: 5 G, QD
  7. CARNACULIN [Concomitant]
     Active Substance: KALLIDINOGENASE
     Dosage: 1 DF, TID
  8. MYONAL TABLETS [Concomitant]
     Dosage: 50 MG, BID
  9. CALTAN [Concomitant]
     Active Substance: CALCIUM CARBONATE
     Dosage: 1000 MG, BID
  10. ARTIST TABLETS [Concomitant]
     Active Substance: CARVEDILOL
     Dosage: 2.5 MG, QD
  11. REGPARA [Concomitant]
     Active Substance: CINACALCET HYDROCHLORIDE
     Dosage: 12.5 MG, QD
  12. LOXONIN TABLETS [Concomitant]
     Active Substance: LOXOPROFEN SODIUM
     Dosage: 60 MG, PRN
  13. EQUA [Concomitant]
     Active Substance: VILDAGLIPTIN
     Dosage: 50 MG, QD
  14. VALTREX [Suspect]
     Active Substance: VALACYCLOVIR HYDROCHLORIDE
     Dosage: 500 MG, QD
     Dates: start: 20180227
  15. HIRUDOID SOFT OINTMENT [Concomitant]
     Dosage: UNK UNK, PRN
  16. FEBURIC TABLETS [Concomitant]
     Active Substance: FEBUXOSTAT
     Dosage: 10 MG, QD

REACTIONS (4)
  - Altered state of consciousness [Recovering/Resolving]
  - Dysarthria [Recovering/Resolving]
  - Gait disturbance [Recovering/Resolving]
  - Visual acuity reduced [Recovering/Resolving]

NARRATIVE: CASE EVENT DATE: 20180225
